FAERS Safety Report 8017531-8 (Version None)
Quarter: 2011Q4

REPORT INFORMATION
  Report Type: 
  Country: None (occurrence: None)
  Receive Date: 20111228
  Receipt Date: 20111228
  Transmission Date: 20120403
  Serious: Yes (Life-Threatening, Hospitalization, Other)
  Sender: FDA-Public Use
  Company Number: None

PATIENT
  Sex: Male
  Weight: 69.8539 kg

DRUGS (1)
  1. MELOXICAM [Suspect]
     Indication: VARICOCELE
     Dosage: 1 DAILY PILL
     Dates: start: 20110602, end: 20111007

REACTIONS (2)
  - IMPAIRED WORK ABILITY [None]
  - GASTRITIS EROSIVE [None]
